FAERS Safety Report 24610577 (Version 3)
Quarter: 2024Q4

REPORT INFORMATION
  Report Type: Spontaneous
  Country: JP (occurrence: JP)
  Receive Date: 20241112
  Receipt Date: 20241219
  Transmission Date: 20250115
  Serious: Yes (Death, Other)
  Sender: MERCK
  Company Number: JP-MSD-2411JPN001190J

PATIENT
  Age: 9 Decade

DRUGS (2)
  1. STROMECTOL [Suspect]
     Active Substance: IVERMECTIN
     Indication: Acarodermatitis
     Dosage: UNK, ONCE
     Route: 048
     Dates: start: 202409, end: 202409
  2. STROMECTOL [Suspect]
     Active Substance: IVERMECTIN
     Dosage: UNK, ONCE
     Route: 048
     Dates: start: 202410, end: 202410

REACTIONS (2)
  - Death [Fatal]
  - Intentional underdose [Unknown]

NARRATIVE: CASE EVENT DATE: 20240101
